FAERS Safety Report 26149790 (Version 1)
Quarter: 2025Q4

REPORT INFORMATION
  Report Type: Spontaneous
  Country: US (occurrence: None)
  Receive Date: 20251211
  Receipt Date: 20251211
  Transmission Date: 20260117
  Serious: Yes (Hospitalization)
  Sender: FDA-CTU
  Company Number: None

PATIENT
  Sex: Male

DRUGS (11)
  1. LENALIDOMIDE [Suspect]
     Active Substance: LENALIDOMIDE
     Indication: Plasma cell myeloma
     Dosage: TAKE 1 CAPSULE BY MOUTH EVERY DAY FOR 21 DAYS THEN 7 DAYS OFF. BEGIN TAKING ON AUGUST 25, 2025
     Route: 048
     Dates: start: 20250814
  2. ALLOPURINOL TAB 300MG [Concomitant]
  3. ASPIRIN LOW CHW 81 MG [Concomitant]
  4. ATORVASTATIN TAB 10MG [Concomitant]
  5. BRUKINSA CAP 80MG [Concomitant]
  6. BRUKINSA CAP 80MG [Concomitant]
  7. FUROSEMIDE [Concomitant]
     Active Substance: FUROSEMIDE
  8. GABAPENTIN [Concomitant]
     Active Substance: GABAPENTIN
  9. GLIP/METFORM TAB 2.5-500M [Concomitant]
  10. LISINOPRIL [Concomitant]
     Active Substance: LISINOPRIL
  11. METOPROL sue TAB 100MG ER [Concomitant]

REACTIONS (1)
  - Hospitalisation [None]
